FAERS Safety Report 9284123 (Version 1)
Quarter: 2013Q2

REPORT INFORMATION
  Report Type: Report from Study
  Country: PL (occurrence: PL)
  Receive Date: 20130510
  Receipt Date: 20130510
  Transmission Date: 20140414
  Serious: Yes (Death)
  Sender: FDA-Public Use
  Company Number: PL-SANOFI-AVENTIS-2013SA047193

PATIENT
  Sex: 0

DRUGS (4)
  1. FLUOROURACIL [Suspect]
     Indication: RECTAL CANCER
     Dosage: TWO 5-DAY CYCLES OF 325 MG/M2/DAY DURING  THE ?RST AND ?FTH WEEK OF IRRADIATION
     Route: 040
  2. OXALIPLATIN [Suspect]
     Indication: RECTAL CANCER
     Dosage: ONE-DAY INFUSIONS IN 50 MG/M2 GIVEN ONCE A WEEK  AT 1, 8, 15, 22 AND  29 DAYS OF IRRADIATION
     Route: 065
  3. LEUCOVORIN [Suspect]
     Indication: RECTAL CANCER
     Dosage: TWO 5-DAY CYCLES OF 20 MG/M2/DAY DURING THE ?RST AND ?FTH WEEK OF IRRADIATION
     Route: 040
  4. THERAPEUTIC RADIOPHARMACEUTICALS [Suspect]
     Indication: RECTAL CANCER
     Dosage: 50.4 GY IN 28 FRACTIONS OF 1.8 GY
     Route: 065

REACTIONS (1)
  - Embolism [Fatal]
